FAERS Safety Report 9686489 (Version 3)
Quarter: 2013Q4

REPORT INFORMATION
  Report Type: Spontaneous
  Country: US (occurrence: US)
  Receive Date: 20131113
  Receipt Date: 20131212
  Transmission Date: 20140711
  Serious: Yes (Other)
  Sender: FDA-Public Use
  Company Number: US-BAXTER-2013BAX044647

PATIENT
  Sex: Female

DRUGS (6)
  1. GAMMAGARD LIQUID [Suspect]
     Indication: PRODUCT USED FOR UNKNOWN INDICATION
  2. HIZENTRA [Suspect]
     Indication: PRODUCT USED FOR UNKNOWN INDICATION
     Route: 058
  3. PRIVIGEN [Suspect]
     Indication: PRODUCT USED FOR UNKNOWN INDICATION
  4. BENADRYL [Concomitant]
     Indication: PREMEDICATION
  5. HYDROCORTISONE [Concomitant]
     Indication: PREMEDICATION
  6. SOLUMEDROL [Concomitant]
     Indication: PREMEDICATION

REACTIONS (1)
  - Anaphylactic reaction [Unknown]
